FAERS Safety Report 25341352 (Version 1)
Quarter: 2025Q2

REPORT INFORMATION
  Report Type: Spontaneous
  Country: US (occurrence: US)
  Receive Date: 20250521
  Receipt Date: 20250521
  Transmission Date: 20250716
  Serious: Yes (Hospitalization, Other)
  Sender: JOHNSON AND JOHNSON
  Company Number: US-JNJFOC-20250517254

PATIENT
  Age: 20 Year
  Sex: Male

DRUGS (12)
  1. INVEGA SUSTENNA [Suspect]
     Active Substance: PALIPERIDONE PALMITATE
     Indication: Bipolar I disorder
     Route: 030
  2. INVEGA SUSTENNA [Suspect]
     Active Substance: PALIPERIDONE PALMITATE
     Route: 030
  3. INVEGA SUSTENNA [Suspect]
     Active Substance: PALIPERIDONE PALMITATE
  4. RISPERIDONE [Suspect]
     Active Substance: RISPERIDONE
     Indication: Bipolar I disorder
     Route: 048
  5. RISPERIDONE [Suspect]
     Active Substance: RISPERIDONE
     Route: 048
  6. BENZTROPINE [Suspect]
     Active Substance: BENZTROPINE
     Indication: Bipolar I disorder
  7. VALPROATE [Interacting]
     Active Substance: VALPROIC ACID
     Indication: Bipolar I disorder
     Route: 048
  8. PALIPERIDONE [Concomitant]
     Active Substance: PALIPERIDONE
     Indication: Aggression
  9. HALOPERIDOL [Concomitant]
     Active Substance: HALOPERIDOL
     Indication: Aggression
  10. OLANZAPINE [Concomitant]
     Active Substance: OLANZAPINE
     Indication: Aggression
  11. LORAZEPAM [Concomitant]
     Active Substance: LORAZEPAM
     Indication: Aggression
  12. DIPHENHYDRAMINE [Concomitant]
     Active Substance: DIPHENHYDRAMINE
     Indication: Aggression

REACTIONS (4)
  - Hyperammonaemic encephalopathy [Recovering/Resolving]
  - Drug interaction [Unknown]
  - Off label use [Unknown]
  - Extrapyramidal disorder [Recovering/Resolving]
